FAERS Safety Report 8499447-6 (Version None)
Quarter: 2012Q2

REPORT INFORMATION
  Report Type: 
  Country: None (occurrence: None)
  Receive Date: 20120618
  Receipt Date: 20120604
  Transmission Date: 20120825
  Serious: Yes (Death, Hospitalization, Other)
  Sender: FDA-Public Use
  Company Number: 2011PROUSA00902

PATIENT
  Age: 67 Year
  Sex: Male
  Weight: 80.7 kg

DRUGS (15)
  1. SIMVASTATIN [Concomitant]
  2. ZANTAC [Concomitant]
  3. FISH OIL (FISH OIL) [Concomitant]
  4. METFFORMIN HYDROCHLORIDE [Concomitant]
  5. ZOLOFT [Concomitant]
  6. PERCOCET [Concomitant]
  7. CHOLECALCIFEROL (COLECALCIFEROL) [Concomitant]
  8. PROVENGE [Suspect]
     Indication: PROSTATE CANCER METASTATIC
     Dosage: 250 ML, SINGLE, INTRAVENOUS
     Route: 042
     Dates: start: 20111215, end: 20111215
  9. AMLODIPINE [Concomitant]
  10. NEURONTIN [Concomitant]
  11. RANITIDINE HYDROCHLORIDE [Concomitant]
  12. COUMADIN [Suspect]
     Dosage: 2.5, QD
  13. SYNTHROID [Concomitant]
  14. DIGOXIN [Concomitant]
  15. HEPARIN [Suspect]

REACTIONS (24)
  - GANGRENE [None]
  - DIZZINESS [None]
  - INTERNATIONAL NORMALISED RATIO INCREASED [None]
  - HEPARIN-INDUCED THROMBOCYTOPENIA [None]
  - VASOCONSTRICTION [None]
  - CONFUSIONAL STATE [None]
  - MALNUTRITION [None]
  - FAILURE TO THRIVE [None]
  - PERIPHERAL ISCHAEMIA [None]
  - RESPIRATORY DISTRESS [None]
  - HYPONATRAEMIA [None]
  - HAEMATURIA [None]
  - ASTHENIA [None]
  - PERIPHERAL ARTERIAL OCCLUSIVE DISEASE [None]
  - DISEASE PROGRESSION [None]
  - PANCYTOPENIA [None]
  - UPPER RESPIRATORY TRACT INFECTION [None]
  - COUGH [None]
  - TRANSIENT ISCHAEMIC ATTACK [None]
  - INSOMNIA [None]
  - ATRIAL FIBRILLATION [None]
  - TOXICITY TO VARIOUS AGENTS [None]
  - PNEUMONIA [None]
  - CHOKING SENSATION [None]
